FAERS Safety Report 21323145 (Version 1)
Quarter: 2022Q3

REPORT INFORMATION
  Report Type: Spontaneous
  Country: US (occurrence: None)
  Receive Date: 20220909
  Receipt Date: 20220909
  Transmission Date: 20221026
  Serious: Yes (Other)
  Sender: FDA-Public Use
  Company Number: None

PATIENT
  Age: 64 Year
  Sex: Female
  Weight: 98 kg

DRUGS (1)
  1. CARBOPLATIN [Suspect]
     Active Substance: CARBOPLATIN
     Indication: Ovarian cancer
     Dosage: OTHER FREQUENCY : ONE TIME;?
     Route: 040

REACTIONS (5)
  - Infusion related reaction [None]
  - Bronchospasm [None]
  - Cough [None]
  - Wheezing [None]
  - Dyspnoea [None]

NARRATIVE: CASE EVENT DATE: 20220810
